FAERS Safety Report 9787290 (Version 1)
Quarter: 2013Q4

REPORT INFORMATION
  Report Type: Spontaneous
  Country: GB (occurrence: GB)
  Receive Date: 20131230
  Receipt Date: 20131230
  Transmission Date: 20140711
  Serious: Yes (Hospitalization, Other)
  Sender: FDA-Public Use
  Company Number: PHHY2013GB149147

PATIENT
  Age: 68 Year
  Sex: Male

DRUGS (2)
  1. CLOZAPINE [Suspect]
  2. CANNABIS [Concomitant]

REACTIONS (13)
  - Toxicity to various agents [Unknown]
  - Circulatory collapse [Unknown]
  - Unresponsive to stimuli [Unknown]
  - Coma scale abnormal [Unknown]
  - Pneumonia aspiration [Unknown]
  - Overdose [Unknown]
  - Encephalopathy [Unknown]
  - Renal failure acute [Unknown]
  - Haemodynamic instability [Unknown]
  - Ileus [Unknown]
  - Hypotension [Unknown]
  - Mydriasis [Unknown]
  - Myoclonus [Unknown]
